FAERS Safety Report 8317973-7 (Version None)
Quarter: 2012Q2

REPORT INFORMATION
  Report Type: 
  Country: None (occurrence: None)
  Receive Date: 20120427
  Receipt Date: 20120423
  Transmission Date: 20120825
  Serious: Yes (Hospitalization)
  Sender: FDA-Public Use
  Company Number: JP-SANOFI-AVENTIS-2011SA082719

PATIENT
  Age: 71 Year
  Sex: Male
  Weight: 56 kg

DRUGS (9)
  1. MEDROL [Concomitant]
     Route: 048
  2. LANSOPRAZOLE [Suspect]
     Indication: PROPHYLAXIS
     Route: 048
     Dates: start: 20111121
  3. PLETAL [Concomitant]
     Dates: end: 20111129
  4. LORAZEPAM [Concomitant]
     Route: 048
  5. ACETYLSALICYLIC ACID SRT [Suspect]
     Indication: ANGINA PECTORIS
     Route: 048
     Dates: start: 20111121
  6. PLAVIX [Suspect]
     Indication: PERCUTANEOUS CORONARY INTERVENTION
     Route: 048
     Dates: start: 20111121, end: 20111128
  7. ALITHIA N [Concomitant]
     Dosage: DOSE: 50
     Route: 048
  8. ADENOSINE [Concomitant]
     Route: 048
  9. ALL OTHER THERAPEUTIC PRODUCTS [Concomitant]
     Route: 048
     Dates: end: 20111121

REACTIONS (3)
  - HAEMORRHAGE SUBCUTANEOUS [None]
  - ACQUIRED HAEMOPHILIA [None]
  - VENOUS HAEMORRHAGE [None]
